FAERS Safety Report 6915868-4 (Version None)
Quarter: 2010Q3

REPORT INFORMATION
  Report Type: 
  Country: None (occurrence: None)
  Receive Date: 20100810
  Receipt Date: 20100804
  Transmission Date: 20110219
  Serious: Yes (Hospitalization)
  Sender: FDA-Public Use
  Company Number: JP-ELI_LILLY_AND_COMPANY-JP201007003505

PATIENT
  Age: 57 Year
  Sex: Male
  Weight: 59 kg

DRUGS (12)
  1. PEMETREXED [Suspect]
     Indication: LUNG ADENOCARCINOMA STAGE IV
     Dosage: 500 MG/M2, OTHER
     Route: 042
     Dates: start: 20100122, end: 20100310
  2. CARBOPLATIN [Concomitant]
     Indication: LUNG ADENOCARCINOMA STAGE IV
     Dosage: 550 MG, UNK
     Route: 042
     Dates: start: 20100122, end: 20100310
  3. FOLIAMIN [Concomitant]
     Dosage: 0.5 MG, DAILY (1/D)
     Route: 048
     Dates: start: 20100115, end: 20100410
  4. METHYCOBAL [Concomitant]
     Dosage: 1 MG, UNK
     Route: 030
     Dates: start: 20100115, end: 20100115
  5. MAGMITT [Concomitant]
     Indication: CONSTIPATION PROPHYLAXIS
     Route: 048
     Dates: start: 20100112, end: 20100409
  6. CODEINE PHOSPHATE [Concomitant]
     Indication: COUGH
     Route: 048
     Dates: start: 20100112, end: 20100409
  7. MYSLEE [Concomitant]
     Indication: INSOMNIA
     Route: 048
     Dates: start: 20100118, end: 20100409
  8. AUZEI [Concomitant]
     Indication: HAEMOPTYSIS
     Route: 065
     Dates: start: 20100118, end: 20100409
  9. TRANEXAMIC ACID [Concomitant]
     Indication: HAEMOPTYSIS
     Route: 065
     Dates: start: 20100118, end: 20100409
  10. MUCOSOLVAN [Concomitant]
     Indication: HAEMORRHOIDS
     Route: 048
     Dates: start: 20100118, end: 20100409
  11. KYTRIL [Concomitant]
     Route: 042
     Dates: start: 20100122, end: 20100310
  12. RAMELTEON [Concomitant]
     Route: 048
     Dates: start: 20100123, end: 20100313

REACTIONS (1)
  - INTERSTITIAL LUNG DISEASE [None]
